FAERS Safety Report 8423408-6 (Version None)
Quarter: 2012Q2

REPORT INFORMATION
  Report Type: 
  Country: None (occurrence: None)
  Receive Date: 20120608
  Receipt Date: 20120607
  Transmission Date: 20120825
  Serious: Yes (Life-Threatening)
  Sender: FDA-Public Use
  Company Number: JP-B.I. PHARMACEUTICALS,INC./RIDGEFIELD-2011-BP-24738NB

PATIENT
  Sex: Male
  Weight: 50 kg

DRUGS (5)
  1. PRADAXA [Suspect]
     Indication: ATRIAL FIBRILLATION
     Dosage: 220 MG
     Route: 048
     Dates: start: 20110706, end: 20110914
  2. HUMALOG [Suspect]
     Indication: TYPE 1 DIABETES MELLITUS
     Dosage: 18 U
     Route: 058
     Dates: start: 20110704, end: 20111003
  3. APIDRA [Suspect]
     Indication: TYPE 1 DIABETES MELLITUS
     Dosage: 14 U
     Route: 058
     Dates: start: 20111027, end: 20111227
  4. LANTUS [Concomitant]
     Indication: TYPE 1 DIABETES MELLITUS
     Route: 065
  5. NOVORAPID [Suspect]
     Indication: TYPE 1 DIABETES MELLITUS
     Dosage: 12 U
     Route: 058
     Dates: start: 20111003, end: 20111027

REACTIONS (3)
  - HYPOTHYROIDISM [None]
  - HEPATIC FUNCTION ABNORMAL [None]
  - JAUNDICE [None]
